FAERS Safety Report 12100110 (Version 1)
Quarter: 2016Q1

REPORT INFORMATION
  Report Type: Spontaneous
  Country: US (occurrence: US)
  Receive Date: 20160222
  Receipt Date: 20160222
  Transmission Date: 20160526
  Serious: No
  Sender: FDA-Public Use
  Company Number: US-BAUSCH-BL-2015-014602

PATIENT
  Age: 70 Year
  Sex: Female

DRUGS (13)
  1. CRANBERRY+VITAMIN C [Concomitant]
     Indication: PRODUCT USED FOR UNKNOWN INDICATION
  2. VITAMIN B12 + FOLIC ACID [Concomitant]
     Indication: PRODUCT USED FOR UNKNOWN INDICATION
  3. GARLIC. [Concomitant]
     Active Substance: GARLIC
     Indication: PRODUCT USED FOR UNKNOWN INDICATION
  4. MALIC ACID [Concomitant]
     Active Substance: MALIC ACID
     Indication: PRODUCT USED FOR UNKNOWN INDICATION
  5. VITAMIN D3 [Concomitant]
     Active Substance: CHOLECALCIFEROL
     Indication: PRODUCT USED FOR UNKNOWN INDICATION
  6. LIQUID IRON [Concomitant]
     Indication: PRODUCT USED FOR UNKNOWN INDICATION
  7. CARDIZEM CD [Suspect]
     Active Substance: DILTIAZEM HYDROCHLORIDE
     Indication: BLOOD PRESSURE MEASUREMENT
     Route: 048
  8. OMEGA 3 [Concomitant]
     Active Substance: OMEGA-3 FATTY ACIDS
     Indication: PRODUCT USED FOR UNKNOWN INDICATION
  9. BALANCE B-50 [Concomitant]
     Indication: PRODUCT USED FOR UNKNOWN INDICATION
  10. GLUCOSAMINE + MSM [Concomitant]
     Active Substance: DIMETHYL SULFONE\GLUCOSAMINE SULFATE
     Indication: PRODUCT USED FOR UNKNOWN INDICATION
  11. PLANT STEROL [Concomitant]
     Indication: PRODUCT USED FOR UNKNOWN INDICATION
  12. ACIDOPHILIS [Concomitant]
     Active Substance: LACTOBACILLUS ACIDOPHILUS
     Indication: PRODUCT USED FOR UNKNOWN INDICATION
  13. ESTER C [Concomitant]
     Indication: PRODUCT USED FOR UNKNOWN INDICATION

REACTIONS (3)
  - Hypertension [Recovering/Resolving]
  - Neck pain [Recovering/Resolving]
  - Headache [Recovering/Resolving]

NARRATIVE: CASE EVENT DATE: 2015
